FAERS Safety Report 11070153 (Version 1)
Quarter: 2015Q2

REPORT INFORMATION
  Report Type: Spontaneous
  Country: US (occurrence: US)
  Receive Date: 20150427
  Receipt Date: 20150427
  Transmission Date: 20150821
  Serious: Yes (Hospitalization)
  Sender: FDA-Public Use
  Company Number: US-JAZZ-2014-US-009815

PATIENT
  Age: 24 Year
  Sex: Female

DRUGS (2)
  1. XYREM [Suspect]
     Active Substance: SODIUM OXYBATE
     Indication: NARCOLEPSY
  2. XYREM [Suspect]
     Active Substance: SODIUM OXYBATE
     Indication: CATAPLEXY
     Dosage: APPROXIMATELY 6 G
     Route: 048
     Dates: start: 20140801, end: 201408

REACTIONS (4)
  - Coma [Recovered/Resolved]
  - Sleep apnoea syndrome [Unknown]
  - Swollen tongue [Unknown]
  - Accidental overdose [Unknown]

NARRATIVE: CASE EVENT DATE: 201408
